FAERS Safety Report 6235837-X (Version None)
Quarter: 2009Q2

REPORT INFORMATION
  Report Type: 
  Country: None (occurrence: None)
  Receive Date: 20090617
  Receipt Date: 20090617
  Transmission Date: 20091009
  Serious: No
  Sender: FDA-Public Use
  Company Number: None

PATIENT
  Age: 36 Year
  Sex: Female
  Weight: 55.3388 kg

DRUGS (1)
  1. ZYCAM [Suspect]
     Indication: NASOPHARYNGITIS
     Dates: start: 20050101, end: 20050106

REACTIONS (1)
  - ANOSMIA [None]
